FAERS Safety Report 8978166 (Version 1)
Quarter: 2012Q4

REPORT INFORMATION
  Report Type: Spontaneous
  Country: CH (occurrence: None)
  Receive Date: 20120905
  Receipt Date: 20120905
  Transmission Date: 20130627
  Serious: Yes (Hospitalization)
  Sender: FDA-Public Use
  Company Number: 218603

PATIENT
  Age: 55 Year

DRUGS (1)
  1. DAIVOBET [Suspect]
     Route: 061

REACTIONS (4)
  - Drug ineffective [None]
  - Staphylococcal infection [None]
  - Psoriasis [None]
  - Off label use [None]
